FAERS Safety Report 5215530-2 (Version None)
Quarter: 2007Q1

REPORT INFORMATION
  Report Type: 
  Country: None (occurrence: None)
  Receive Date: 20070123
  Receipt Date: 20070115
  Transmission Date: 20070707
  Serious: Yes (Life-Threatening, Hospitalization)
  Sender: FDA-Public Use
  Company Number: FR-BAYER-200610569BFR

PATIENT
  Age: 53 Year
  Sex: Male
  Weight: 98 kg

DRUGS (4)
  1. VARDENAFIL [Suspect]
     Indication: ERECTILE DYSFUNCTION
     Dosage: UNIT DOSE: 20 MG
     Route: 048
     Dates: start: 20060202, end: 20060612
  2. VARDENAFIL [Suspect]
     Dosage: UNIT DOSE: 20 MG
     Route: 048
     Dates: start: 20060725
  3. VISKEN [Concomitant]
     Indication: HYPERTENSION
     Dosage: UNIT DOSE: 5 MG
     Route: 048
     Dates: start: 20050901
  4. TRIATEC [Concomitant]
     Indication: HYPERTENSION
     Dosage: UNIT DOSE: 2.5 MG
     Route: 048
     Dates: start: 20050901

REACTIONS (1)
  - PULMONARY EMBOLISM [None]
